FAERS Safety Report 11417235 (Version 1)
Quarter: 2015Q3

REPORT INFORMATION
  Report Type: Spontaneous
  Country: US (occurrence: US)
  Receive Date: 20150825
  Receipt Date: 20150825
  Transmission Date: 20151125
  Serious: Yes (Other)
  Sender: FDA-Public Use
  Company Number: US-MYLANLABS-2015M1028491

PATIENT

DRUGS (6)
  1. CARNITINE [Concomitant]
     Active Substance: CARNITINE
     Indication: METHYLMALONIC ACIDURIA
     Route: 065
  2. VINCRISTINE [Suspect]
     Active Substance: VINCRISTINE
     Indication: HEPATOBLASTOMA
     Dosage: SIX CYCLES WERE ADMINISTERED
     Route: 065
  3. METRONIDAZOLE. [Concomitant]
     Active Substance: METRONIDAZOLE
     Indication: METHYLMALONIC ACIDURIA
     Route: 065
  4. SODIUM BENZOATE [Concomitant]
     Active Substance: SODIUM BENZOATE
     Indication: METHYLMALONIC ACIDURIA
     Route: 065
  5. CISPLATIN. [Suspect]
     Active Substance: CISPLATIN
     Indication: HEPATOBLASTOMA
     Dosage: FOUR CYCLES ADMINISTERED OVER 4 MONTHS
     Route: 065
  6. FLUOROURACIL. [Suspect]
     Active Substance: FLUOROURACIL
     Indication: HEPATOBLASTOMA
     Dosage: 6 CYCLES ADMINISTERED
     Route: 065

REACTIONS (9)
  - Thrombocytopenia [Unknown]
  - Deafness neurosensory [Unknown]
  - Anaemia [Unknown]
  - Staphylococcal sepsis [Unknown]
  - Febrile neutropenia [Unknown]
  - Dermatitis diaper [Unknown]
  - Speech disorder [Not Recovered/Not Resolved]
  - Metabolic acidosis [Recovered/Resolved]
  - Hyperglycaemia [Unknown]
